FAERS Safety Report 5014558-5 (Version None)
Quarter: 2006Q2

REPORT INFORMATION
  Report Type: 
  Country: None (occurrence: None)
  Receive Date: 20060525
  Receipt Date: 20060512
  Transmission Date: 20061013
  Serious: Yes (Hospitalization, Other)
  Sender: FDA-Public Use
  Company Number: 2005140471

PATIENT
  Age: 79 Year
  Sex: Male

DRUGS (11)
  1. BEXTRA [Suspect]
     Indication: ANALGESIC EFFECT
     Dosage: 20 MG (1 D),
     Dates: start: 20020701, end: 20020901
  2. BEXTRA [Suspect]
     Indication: OSTEOARTHRITIS
     Dosage: 20 MG (1 D),
     Dates: start: 20020701, end: 20020901
  3. LANOXIN [Concomitant]
  4. COREG [Concomitant]
  5. LIPITOR [Concomitant]
  6. PROPYLTHIOURACIL [Concomitant]
  7. ECOTRIN (ACETYLSALICYLIC ACID) [Concomitant]
  8. ATARAX [Concomitant]
  9. MICRO-K (POTASSIUM CHLORIDE) [Concomitant]
  10. DEMADEX [Concomitant]
  11. ALDACTONE [Concomitant]

REACTIONS (2)
  - RENAL FAILURE ACUTE [None]
  - STEVENS-JOHNSON SYNDROME [None]
